FAERS Safety Report 8591114-3 (Version None)
Quarter: 2012Q3

REPORT INFORMATION
  Report Type: 
  Country: None (occurrence: None)
  Receive Date: 20120813
  Receipt Date: 20120803
  Transmission Date: 20120928
  Serious: Yes (Other)
  Sender: FDA-Public Use
  Company Number: JP-BAXTER-2012BAX013701

PATIENT
  Sex: Male
  Weight: 68 kg

DRUGS (3)
  1. EXTRANEAL [Suspect]
     Indication: GLOMERULONEPHRITIS CHRONIC
     Route: 033
  2. DIANEAL 137 W/ DEXTROSE 2.5% IN PLASTIC CONTAINER [Suspect]
     Indication: GLOMERULONEPHRITIS CHRONIC
     Route: 033
  3. DIANEAL PD-2 W/ DEXTROSE 4.25% [Suspect]
     Indication: GLOMERULONEPHRITIS CHRONIC
     Route: 033

REACTIONS (2)
  - PYREXIA [None]
  - PERITONITIS [None]
